FAERS Safety Report 14441426 (Version 4)
Quarter: 2018Q3

REPORT INFORMATION
  Report Type: Spontaneous
  Country: US (occurrence: US)
  Receive Date: 20180125
  Receipt Date: 20180720
  Transmission Date: 20181010
  Serious: Yes (Hospitalization, Other)
  Sender: FDA-Public Use
  Company Number: US-PFIZER INC-2018029116

PATIENT
  Age: 65 Year
  Sex: Female
  Weight: 68 kg

DRUGS (33)
  1. GENOTROPIN [Suspect]
     Active Substance: SOMATROPIN
     Indication: HYPOPITUITARISM
     Dosage: 0.4 MG, 1X/DAY
     Dates: start: 2015
  2. GENOTROPIN [Suspect]
     Active Substance: SOMATROPIN
     Dosage: 1 MG, DAILY
     Route: 058
  3. PHENERGAN [Concomitant]
     Active Substance: PROMETHAZINE HYDROCHLORIDE
     Dosage: UNK
  4. GENOTROPIN [Suspect]
     Active Substance: SOMATROPIN
     Indication: SECONDARY ADRENOCORTICAL INSUFFICIENCY
     Dosage: 0.4 MG, DAILY; [FOR 90 DAYS]
     Route: 058
     Dates: start: 20171117
  5. SOLU?CORTEF [Concomitant]
     Active Substance: HYDROCORTISONE SODIUM SUCCINATE
     Dosage: 150 MG, UNK
     Route: 030
  6. HYDROCORTISONE. [Concomitant]
     Active Substance: HYDROCORTISONE
     Dosage: 20 MG, UNK; [4 TABLET (ORAL) 3 TABLET AM,1 TABLET 2 PM FOR 90 DAYS, 15 MG AM,5 MG AT 2 PM]
     Route: 048
     Dates: start: 20171208
  7. ASPIRIN CHILDREN [Concomitant]
     Active Substance: ASPIRIN
     Dosage: 81 MG, UNK
     Route: 048
  8. SERTRALINE HCL [Concomitant]
     Active Substance: SERTRALINE HYDROCHLORIDE
     Dosage: 50 MG, UNK
     Route: 048
  9. IBUPROFEN. [Concomitant]
     Active Substance: IBUPROFEN
     Indication: PAIN
     Dosage: 800 MG, AS NEEDED; [Q8H]
     Route: 048
  10. CALAN [Concomitant]
     Active Substance: VERAPAMIL HYDROCHLORIDE
     Dosage: 120 MG, DAILY
     Route: 048
  11. LIPITOR [Concomitant]
     Active Substance: ATORVASTATIN CALCIUM
     Dosage: 40 MG, BEDTIME
     Route: 048
  12. SYNTHROID [Concomitant]
     Active Substance: LEVOTHYROXINE SODIUM
     Dosage: 112 UG, DAILY; FOR 90 DAYS
     Route: 048
     Dates: start: 20171208
  13. RECLAST [Concomitant]
     Active Substance: ZOLEDRONIC ACID
     Indication: OSTEOPOROSIS
     Dosage: 5 MG, UNK; [YEARLY FOR 365 DAYS]
     Route: 042
     Dates: start: 20170606
  14. FIORINAL [Concomitant]
     Active Substance: ASPIRIN\BUTALBITAL\CAFFEINE
     Indication: MIGRAINE
     Dosage: UNK UNK, AS NEEDED; [CODEINE PHOSPHATE 50MG , PARACETAMOL 325 MG, SALICYLAMIDE 40 MG]; Q4H
     Route: 048
  15. NORCO [Concomitant]
     Active Substance: ACETAMINOPHEN\HYDROCODONE BITARTRATE
     Indication: PAIN
     Dosage: UNK UNK, AS NEEDED; [HYDROCODONE BITARTRATE 5MG, PARACETAMOL 325 MG, 1?2 EACH PO Q4H]
     Route: 048
  16. ZOFRAN [Concomitant]
     Active Substance: ONDANSETRON HYDROCHLORIDE
     Indication: VOMITING
  17. GENOTROPIN [Suspect]
     Active Substance: SOMATROPIN
     Indication: SECONDARY ADRENOCORTICAL INSUFFICIENCY
     Dosage: 0.4 MG, 1X/DAY
     Dates: start: 2015
  18. SOLU?CORTEF [Concomitant]
     Active Substance: HYDROCORTISONE SODIUM SUCCINATE
     Indication: ADRENOCORTICAL INSUFFICIENCY ACUTE
     Dosage: 100 MG, 3X/DAY;[EVERY 8 HOURS,FOR 90 DAYS]]
     Route: 030
     Dates: start: 20180124
  19. HYDROCORTISONE. [Concomitant]
     Active Substance: HYDROCORTISONE
     Dosage: 20 MG, 2X/DAY
     Route: 048
  20. VERAPAMIL HCL [Concomitant]
     Active Substance: VERAPAMIL HYDROCHLORIDE
     Dosage: 120 MG, 2X/DAY
     Route: 048
  21. ATORVASTATIN CALCIUM. [Concomitant]
     Active Substance: ATORVASTATIN CALCIUM
     Dosage: 20 MG, UNK
     Route: 048
  22. FIORICET [Concomitant]
     Active Substance: ACETAMINOPHEN\BUTALBITAL\CAFFEINE
     Dosage: UNK UNK, AS NEEDED; [1?2 TAB Q4H,BUTALBITAL 50 MG, CAFFEINE 40 MG, PARACETAMOL 325 MG]
     Route: 048
  23. VERAPAMIL [Concomitant]
     Active Substance: VERAPAMIL HYDROCHLORIDE
     Indication: MIGRAINE
     Dosage: 120 MG, 2X/DAY
     Route: 048
  24. SERTRALINE HCL [Concomitant]
     Active Substance: SERTRALINE HYDROCHLORIDE
     Dosage: 25 MG, DAILY
     Route: 048
  25. OMEPRAZOLE. [Concomitant]
     Active Substance: OMEPRAZOLE
     Dosage: 20 MG, DAILY; [FOR 90 DAYS]
     Route: 048
     Dates: start: 20170516
  26. GENOTROPIN [Suspect]
     Active Substance: SOMATROPIN
     Indication: HYPOPITUITARISM
     Dosage: 0.4 MG, 1X/DAY
     Route: 058
  27. GENOTROPIN [Suspect]
     Active Substance: SOMATROPIN
     Dosage: 0.4 MG, DAILY
     Dates: start: 201502
  28. VITAMIN D3 [Concomitant]
     Active Substance: CHOLECALCIFEROL
     Dosage: 2000 IU, DAILY
     Route: 048
  29. VITAMIN D [Concomitant]
     Active Substance: CHOLECALCIFEROL
     Dosage: UNK
     Route: 048
  30. ZOFRAN [Concomitant]
     Active Substance: ONDANSETRON HYDROCHLORIDE
     Indication: NAUSEA
     Dosage: 4 MG, AS NEEDED Q4H
     Route: 048
  31. CORTEF [Concomitant]
     Active Substance: HYDROCORTISONE
     Dosage: 20 MG, 2X/DAY
     Route: 048
  32. ATORVASTATIN CALCIUM. [Concomitant]
     Active Substance: ATORVASTATIN CALCIUM
     Dosage: 40 MG, UNK; [BEDTIME]
     Route: 048
  33. ZOLOFT [Concomitant]
     Active Substance: SERTRALINE HYDROCHLORIDE
     Dosage: 25 MG, DAILY
     Route: 048

REACTIONS (7)
  - Drug dose omission [Unknown]
  - Vomiting [Recovered/Resolved]
  - Gastroenteritis viral [Recovered/Resolved]
  - Nasopharyngitis [Unknown]
  - Haematemesis [Recovering/Resolving]
  - Device battery issue [Unknown]
  - Mallory-Weiss syndrome [Unknown]

NARRATIVE: CASE EVENT DATE: 201712
